FAERS Safety Report 9304610 (Version 1)
Quarter: 2013Q2

REPORT INFORMATION
  Report Type: Spontaneous
  Country: US (occurrence: US)
  Receive Date: 20130523
  Receipt Date: 20130523
  Transmission Date: 20140414
  Serious: Yes (Hospitalization)
  Sender: FDA-Public Use
  Company Number: US-BIOGENIDEC-2013BI045026

PATIENT
  Age: 52 Year
  Sex: Female

DRUGS (2)
  1. AVONEX [Suspect]
     Indication: MULTIPLE SCLEROSIS
     Route: 030
     Dates: start: 20121224
  2. PM OTC MEDS (NOS) [Concomitant]

REACTIONS (4)
  - Overdose [Recovered/Resolved]
  - Drug interaction [Recovered/Resolved]
  - Delirium [Unknown]
  - Confusional state [Unknown]
